FAERS Safety Report 10188107 (Version 1)
Quarter: 2014Q2

REPORT INFORMATION
  Report Type: Spontaneous
  Country: US (occurrence: US)
  Receive Date: 20140522
  Receipt Date: 20140522
  Transmission Date: 20141212
  Serious: Yes (Death, Other)
  Sender: FDA-Public Use
  Company Number: GB-009507513-1405USA010554

PATIENT
  Sex: Male

DRUGS (1)
  1. PROPECIA [Suspect]

REACTIONS (1)
  - Completed suicide [Fatal]
